FAERS Safety Report 7030984-7 (Version None)
Quarter: 2010Q4

REPORT INFORMATION
  Report Type: 
  Country: None (occurrence: None)
  Receive Date: 20101006
  Receipt Date: 20100326
  Transmission Date: 20110411
  Serious: Yes (Other)
  Sender: FDA-Public Use
  Company Number: US-BRISTOL-MYERS SQUIBB COMPANY-15018203

PATIENT
  Age: 23 Year
  Sex: Female

DRUGS (2)
  1. KENALOG-40 [Suspect]
     Indication: SINUSITIS
     Dosage: ROUTE- INJ INTO SINUS CAVITY
  2. PREDNISONE [Concomitant]
     Dosage: 1DF- 60MG,40MG,20MG

REACTIONS (2)
  - CONVULSION [None]
  - MIGRAINE [None]
